FAERS Safety Report 8561273-7 (Version None)
Quarter: 2012Q3

REPORT INFORMATION
  Report Type: 
  Country: None (occurrence: None)
  Receive Date: 20120802
  Receipt Date: 20120717
  Transmission Date: 20120928
  Serious: No
  Sender: FDA-Public Use
  Company Number: US-ASTRAZENECA-2011SE49061

PATIENT
  Age: 57 Year
  Sex: Female

DRUGS (9)
  1. CRESTOR [Suspect]
     Route: 048
  2. NEXIUM [Suspect]
     Route: 048
  3. METOPROLOL TARTRATE [Concomitant]
  4. HYDROCODONE [Concomitant]
  5. TRAZODONE HYDROCHLORIDE [Concomitant]
  6. PREVACID [Concomitant]
  7. ASPIRIN [Concomitant]
  8. ISOROBMONO ER [Concomitant]
  9. EFFIENT [Concomitant]

REACTIONS (4)
  - DRUG DOSE OMISSION [None]
  - MALAISE [None]
  - VOMITING [None]
  - DRUG HYPERSENSITIVITY [None]
